FAERS Safety Report 8991340 (Version 4)
Quarter: 2013Q1

REPORT INFORMATION
  Report Type: Spontaneous
  Country: US (occurrence: US)
  Receive Date: 20121230
  Receipt Date: 20130211
  Transmission Date: 20140127
  Serious: Yes (Hospitalization)
  Sender: FDA-Public Use
  Company Number: US-ALEXION PHARMACEUTICALS INC.-A201202447

PATIENT
  Age: 27 Year
  Sex: Female
  Weight: 95 kg

DRUGS (20)
  1. SOLIRIS 300MG [Suspect]
     Indication: HAEMOLYTIC URAEMIC SYNDROME
     Dosage: 900 MG, QW
     Route: 042
     Dates: start: 20121207, end: 20121228
  2. SOLIRIS 300MG [Suspect]
     Dosage: 1200 MG, Q2W
     Route: 042
     Dates: start: 20130111
  3. NORCO [Concomitant]
     Indication: CARDIAC DISORDER
     Dosage: 325MG/5MG, Q6H PRN
     Route: 048
  4. ASPIRIN [Concomitant]
     Indication: CARDIAC DISORDER
     Dosage: 81 MG, QD
     Route: 048
  5. ROCALTROL [Concomitant]
     Indication: HYPOCALCAEMIA
     Dosage: 0.25 MG, QD
     Route: 048
  6. COREG [Concomitant]
     Indication: CARDIAC DISORDER
     Dosage: 6.25 MG, BID
     Route: 048
  7. VITAMIN D [Concomitant]
     Indication: SUPPLEMENTATION THERAPY
     Dosage: 2000 IU, QD
     Route: 048
  8. CIPRO [Concomitant]
     Indication: PROPHYLAXIS
     Dosage: 500 MG, QD
     Route: 048
  9. VALIUM [Concomitant]
     Indication: AFFECTIVE DISORDER
     Dosage: 5 MG, TID PRN
     Route: 048
  10. LASIX [Concomitant]
     Indication: FLUID OVERLOAD
     Dosage: 40 MG, QD PM
     Route: 048
  11. LASIX [Concomitant]
     Dosage: 80 MG, QD AM
     Route: 048
  12. APRESOLINE [Concomitant]
     Indication: CARDIAC DISORDER
     Dosage: 50 MG, TID
  13. IMDUR [Concomitant]
     Indication: CHEST PAIN
     Dosage: 60 MG, QD
     Route: 048
  14. ATIVAN [Concomitant]
     Indication: ANXIETY
     Dosage: 0.5 MG, BID PRN
     Route: 048
  15. MYFORTIC [Concomitant]
     Indication: IMMUNOSUPPRESSION
     Dosage: 360 MG, BID
     Route: 048
  16. MICRO K [Concomitant]
     Indication: SUPPLEMENTATION THERAPY
     Dosage: 10 MEQ, QD
     Route: 048
  17. DELTASONE [Concomitant]
     Indication: IMMUNOSUPPRESSION
     Dosage: 5 MG, QD
     Route: 048
  18. SENOKOT-S [Concomitant]
     Indication: CONSTIPATION
     Dosage: 50MG-8.6MG, QDUNK
     Route: 048
  19. PROGRAF [Concomitant]
     Indication: IMMUNOSUPPRESSION
     Dosage: 2 MG, QD
     Route: 048
  20. VALCYTE [Concomitant]
     Indication: PROPHYLAXIS
     Dosage: 450 MG, QD
     Route: 048

REACTIONS (2)
  - Acute pulmonary oedema [Recovered/Resolved]
  - Diarrhoea [Unknown]
